FAERS Safety Report 8836181 (Version 1)
Quarter: 2012Q4

REPORT INFORMATION
  Report Type: 
  Country: HU (occurrence: HU)
  Receive Date: 20121011
  Receipt Date: 20121011
  Transmission Date: 20130627
  Serious: Yes (Other)
  Sender: FDA-Public Use
  Company Number: HU-PFIZER INC-2012248406

PATIENT
  Age: 74 Year
  Sex: Female
  Weight: 75 kg

DRUGS (9)
  1. XALATAN [Suspect]
     Indication: GLAUCOMA
     Dosage: 1 Gtt, 1x/day
     Dates: start: 201204
  2. XANAX [Concomitant]
     Dosage: started 10 years ago
  3. ULPRIX [Concomitant]
     Dosage: UNK
     Dates: start: 2011
  4. LAVESTRA [Concomitant]
     Dosage: started 10 years ago
  5. MELOXAN [Concomitant]
     Dosage: UNK
     Dates: start: 201112
  6. CITAPRAM SANDOZ [Concomitant]
     Dosage: from autumn of 2011
     Dates: start: 2011
  7. OCULOTECT [Concomitant]
     Dosage: UNK
     Dates: start: 201204
  8. SIRDALUD [Concomitant]
     Dosage: from Easter of 2012
     Dates: start: 2012
  9. MILGAMMA [Concomitant]
     Dosage: from autumn of 2011
     Dates: start: 2011

REACTIONS (2)
  - Visual impairment [Unknown]
  - Photophobia [Unknown]
